FAERS Safety Report 25758010 (Version 4)
Quarter: 2025Q3

REPORT INFORMATION
  Report Type: Spontaneous
  Country: EU (occurrence: EU)
  Receive Date: 20250903
  Receipt Date: 20250922
  Transmission Date: 20251021
  Serious: Yes (Other)
  Sender: SANDOZ
  Company Number: EU-SANDOZ-SDZ2025AT062620

PATIENT
  Sex: Female

DRUGS (2)
  1. ESTRADIOL\NORETHINDRONE ACETATE [Suspect]
     Active Substance: ESTRADIOL\NORETHINDRONE ACETATE
     Indication: Product used for unknown indication
     Route: 062
  2. ESTRADIOL\NORETHINDRONE ACETATE [Suspect]
     Active Substance: ESTRADIOL\NORETHINDRONE ACETATE
     Route: 065

REACTIONS (13)
  - Suicidal ideation [Unknown]
  - Genital burning sensation [Unknown]
  - Vulvovaginal dryness [Unknown]
  - Genital pain [Not Recovered/Not Resolved]
  - Visual impairment [Unknown]
  - Dizziness [Unknown]
  - Mucosal dryness [Unknown]
  - Feeling of despair [Unknown]
  - Pelvic deformity [Unknown]
  - Female reproductive tract disorder [Unknown]
  - Burning sensation [Unknown]
  - Pelvic pain [Unknown]
  - Product availability issue [Unknown]
